FAERS Safety Report 13638423 (Version 1)
Quarter: 2017Q2

REPORT INFORMATION
  Report Type: Spontaneous
  Country: FR (occurrence: FR)
  Receive Date: 20170609
  Receipt Date: 20170609
  Transmission Date: 20170830
  Serious: Yes (Other)
  Sender: FDA-Public Use
  Company Number: FR-BAYER-2017-104693

PATIENT
  Age: 25 Year
  Sex: Female

DRUGS (1)
  1. MIRENA [Suspect]
     Active Substance: LEVONORGESTREL
     Indication: CONTRACEPTION
     Dosage: DAILY DOSE 20 ?G
     Route: 015
     Dates: start: 20140919, end: 20170301

REACTIONS (5)
  - Headache [Unknown]
  - Pain [Unknown]
  - Loss of libido [Unknown]
  - Acne [Unknown]
  - Fatigue [Unknown]

NARRATIVE: CASE EVENT DATE: 2014
